FAERS Safety Report 4891876-2 (Version None)
Quarter: 2006Q1

REPORT INFORMATION
  Report Type: 
  Country: None (occurrence: None)
  Receive Date: 20060123
  Receipt Date: 20060110
  Transmission Date: 20060701
  Serious: Yes (Hospitalization, Other)
  Sender: FDA-Public Use
  Company Number: 2005167443

PATIENT
  Age: 87 Year
  Sex: Male
  Weight: 68 kg

DRUGS (1)
  1. DILANTIN KAPSEAL [Suspect]
     Indication: CONVULSION
     Dosage: 300 MG (100 MG, 3 IN 1 D), ORAL
     Route: 048

REACTIONS (3)
  - ANTICONVULSANT DRUG LEVEL DECREASED [None]
  - CEREBROVASCULAR ACCIDENT [None]
  - PHARMACEUTICAL PRODUCT COMPLAINT [None]
